FAERS Safety Report 20681653 (Version 6)
Quarter: 2024Q2

REPORT INFORMATION
  Report Type: Report from Study
  Country: FR (occurrence: FR)
  Receive Date: 20220406
  Receipt Date: 20240517
  Transmission Date: 20240716
  Serious: Yes (Death, Other)
  Sender: FDA-Public Use
  Company Number: FR-ABBVIE-22K-056-4348150-00

PATIENT
  Age: 65 Year
  Sex: Male
  Weight: 55 kg

DRUGS (12)
  1. VENETOCLAX [Suspect]
     Active Substance: VENETOCLAX
     Indication: Chronic lymphocytic leukaemia
     Dosage: 20 MILLIGRAM
     Route: 048
     Dates: start: 20190501, end: 20190506
  2. VENETOCLAX [Suspect]
     Active Substance: VENETOCLAX
     Indication: Chronic lymphocytic leukaemia
     Dosage: 50 MILLIGRAM
     Route: 048
     Dates: start: 20190507, end: 20190512
  3. VENETOCLAX [Suspect]
     Active Substance: VENETOCLAX
     Indication: Chronic lymphocytic leukaemia
     Dosage: 100 MILLIGRAM
     Route: 048
     Dates: start: 20190513, end: 20190528
  4. VENETOCLAX [Suspect]
     Active Substance: VENETOCLAX
     Indication: Chronic lymphocytic leukaemia
     Dosage: 200 MILLIGRAM
     Route: 048
     Dates: start: 20190529, end: 20190604
  5. VENETOCLAX [Suspect]
     Active Substance: VENETOCLAX
     Indication: Chronic lymphocytic leukaemia
     Dosage: 400 MILLIGRAM
     Route: 048
     Dates: start: 20190605, end: 20190611
  6. VENETOCLAX [Suspect]
     Active Substance: VENETOCLAX
     Indication: Chronic lymphocytic leukaemia
     Dosage: 400 MILLIGRAM
     Route: 048
     Dates: start: 202103, end: 20210411
  7. VENETOCLAX [Suspect]
     Active Substance: VENETOCLAX
     Indication: Chronic lymphocytic leukaemia
     Dosage: 200 MILLIGRAM
     Route: 048
     Dates: start: 20210504, end: 20210509
  8. VENETOCLAX [Suspect]
     Active Substance: VENETOCLAX
     Indication: Chronic lymphocytic leukaemia
     Dosage: 400 MILLIGRAM
     Route: 048
     Dates: start: 20210510, end: 20211215
  9. BACTRIM [Concomitant]
     Active Substance: SULFAMETHOXAZOLE\TRIMETHOPRIM
     Indication: Prophylaxis
     Route: 065
     Dates: start: 20190502
  10. LEUCOVORIN CALCIUM [Concomitant]
     Active Substance: LEUCOVORIN CALCIUM
     Indication: Prophylaxis
     Route: 065
     Dates: start: 20190502
  11. VALACYCLOVIR HYDROCHLORIDE [Concomitant]
     Active Substance: VALACYCLOVIR HYDROCHLORIDE
     Indication: Prophylaxis
     Route: 065
     Dates: start: 20190502
  12. INNOHEP [Concomitant]
     Active Substance: TINZAPARIN SODIUM
     Indication: Prophylaxis
     Route: 065
     Dates: start: 20190502

REACTIONS (30)
  - General physical condition abnormal [Fatal]
  - SARS-CoV-2 test positive [Recovered/Resolved with Sequelae]
  - Metastases to bone [Fatal]
  - Cough [Recovered/Resolved]
  - Metastases to lymph nodes [Fatal]
  - Central nervous system lesion [Recovered/Resolved with Sequelae]
  - Metastases to adrenals [Fatal]
  - Metastases to muscle [Fatal]
  - Metastases to liver [Fatal]
  - Asthenia [Recovered/Resolved]
  - Lung cancer metastatic [Fatal]
  - Malnutrition [Not Recovered/Not Resolved]
  - Weight decreased [Not Recovered/Not Resolved]
  - Escherichia infection [Recovered/Resolved]
  - Lung disorder [Recovered/Resolved with Sequelae]
  - Diarrhoea [Recovered/Resolved with Sequelae]
  - Rash [Recovered/Resolved]
  - Metastases to peritoneum [Fatal]
  - Nausea [Recovered/Resolved]
  - Haemorrhage [Recovered/Resolved]
  - Hyperglobulinaemia [Recovered/Resolved]
  - Inflammation [Recovered/Resolved]
  - Oral fungal infection [Recovered/Resolved]
  - Haemorrhoids [Recovered/Resolved]
  - Respiratory failure [Fatal]
  - Respiratory distress [Fatal]
  - Asthenia [Recovered/Resolved]
  - Malignant pleural effusion [Fatal]
  - COVID-19 [Recovered/Resolved]
  - Metastases to pleura [Fatal]

NARRATIVE: CASE EVENT DATE: 20190528
